FAERS Safety Report 6291139-7 (Version None)
Quarter: 2009Q3

REPORT INFORMATION
  Report Type: 
  Country: None (occurrence: None)
  Receive Date: 20090730
  Receipt Date: 20090724
  Transmission Date: 20100115
  Serious: Yes (Hospitalization)
  Sender: FDA-Public Use
  Company Number: A0799409A

PATIENT
  Sex: Female
  Weight: 39 kg

DRUGS (2)
  1. SERETIDE [Suspect]
     Dosage: 1PUFF TWICE PER DAY
     Route: 065
     Dates: start: 20070101
  2. AEROLIN [Concomitant]
     Dosage: 3PUFF FOUR TIMES PER DAY
     Dates: start: 20070101

REACTIONS (2)
  - BRONCHITIS [None]
  - OVERDOSE [None]
